FAERS Safety Report 24980457 (Version 1)
Quarter: 2025Q1

REPORT INFORMATION
  Report Type: Spontaneous
  Country: IT (occurrence: IT)
  Receive Date: 20250218
  Receipt Date: 20250218
  Transmission Date: 20250409
  Serious: Yes (Other)
  Sender: REGENERON
  Company Number: IT-BAYER-2025A020730

PATIENT
  Sex: Female

DRUGS (5)
  1. EYLEA [Suspect]
     Active Substance: AFLIBERCEPT
     Indication: Neovascular age-related macular degeneration
     Route: 031
     Dates: start: 20250103, end: 20250103
  2. HYDROCHLOROTHIAZIDE\QUINAPRIL HYDROCHLORIDE [Concomitant]
     Active Substance: HYDROCHLOROTHIAZIDE\QUINAPRIL HYDROCHLORIDE
     Indication: Product used for unknown indication
  3. CRESTOR [Concomitant]
     Active Substance: ROSUVASTATIN CALCIUM
     Indication: Product used for unknown indication
  4. CHLORHEXIDINE [Concomitant]
     Active Substance: CHLORHEXIDINE
     Indication: Product used for unknown indication
  5. NETTACIN [Concomitant]
     Indication: Product used for unknown indication

REACTIONS (3)
  - Blindness [Unknown]
  - Endophthalmitis [Unknown]
  - Vitreous opacities [Unknown]

NARRATIVE: CASE EVENT DATE: 20250131
